FAERS Safety Report 7093443-1 (Version None)
Quarter: 2010Q4

REPORT INFORMATION
  Report Type: 
  Country: None (occurrence: None)
  Receive Date: 20101102
  Receipt Date: 20101022
  Transmission Date: 20110411
  Serious: Yes (Other)
  Sender: FDA-Public Use
  Company Number: 014932

PATIENT
  Sex: Male
  Weight: 115.5 kg

DRUGS (14)
  1. CERTOLIZUMAB  PEGOL [Suspect]
     Indication: RHEUMATOID ARTHRITIS
     Dosage: 200 MG 1X/2 WEEKS SUBCUTANEOUS, 400 MG, 3 DOSES SUBCUTANEOUS, 200 MG, 1 DOSE SUBCUTANEOUS
     Route: 058
     Dates: start: 20100406, end: 20100505
  2. CERTOLIZUMAB  PEGOL [Suspect]
     Indication: RHEUMATOID ARTHRITIS
     Dosage: 200 MG 1X/2 WEEKS SUBCUTANEOUS, 400 MG, 3 DOSES SUBCUTANEOUS, 200 MG, 1 DOSE SUBCUTANEOUS
     Route: 058
     Dates: start: 20100518, end: 20100518
  3. CERTOLIZUMAB  PEGOL [Suspect]
     Indication: RHEUMATOID ARTHRITIS
     Dosage: 200 MG 1X/2 WEEKS SUBCUTANEOUS, 400 MG, 3 DOSES SUBCUTANEOUS, 200 MG, 1 DOSE SUBCUTANEOUS
     Route: 058
     Dates: start: 20100518, end: 20100527
  4. PREDNISONE [Concomitant]
  5. METHOTREXATE [Concomitant]
  6. PLAQUENIL [Concomitant]
  7. MOTRIN [Concomitant]
  8. PROZAC [Concomitant]
  9. K-DUR [Concomitant]
  10. HYDROCHLOROTHIAZIDE [Concomitant]
  11. VICODIN [Concomitant]
  12. MULTI-VITAMIN [Concomitant]
  13. VITAMINE C [Concomitant]
  14. FISH OIL [Concomitant]

REACTIONS (10)
  - ACNE [None]
  - BLOOD GLUCOSE INCREASED [None]
  - BLOOD UREA NITROGEN/CREATININE RATIO INCREASED [None]
  - CELLULITIS [None]
  - CHEST WALL ABSCESS [None]
  - INSOMNIA [None]
  - PROTEUS TEST POSITIVE [None]
  - PURULENT DISCHARGE [None]
  - TOOTHACHE [None]
  - TREATMENT NONCOMPLIANCE [None]
